FAERS Safety Report 14658641 (Version 2)
Quarter: 2018Q2

REPORT INFORMATION
  Report Type: Spontaneous
  Country: US (occurrence: US)
  Receive Date: 20180320
  Receipt Date: 20180528
  Transmission Date: 20180711
  Serious: No
  Sender: FDA-Public Use
  Company Number: US-BRISTOL-MYERS SQUIBB COMPANY-BMS-2018-025233

PATIENT
  Sex: Male

DRUGS (1)
  1. ORENCIA [Suspect]
     Active Substance: ABATACEPT
     Indication: PSORIATIC ARTHROPATHY
     Dosage: UNAVAILABLE
     Route: 042
     Dates: start: 201802

REACTIONS (4)
  - Swelling [Unknown]
  - Neck pain [Unknown]
  - Dyspnoea [Unknown]
  - Hypersensitivity [Unknown]
